FAERS Safety Report 5866106-5 (Version None)
Quarter: 2008Q3

REPORT INFORMATION
  Report Type: 
  Country: None (occurrence: None)
  Receive Date: 20080829
  Receipt Date: 20080824
  Transmission Date: 20090109
  Serious: Yes (Other)
  Sender: FDA-Public Use
  Company Number: US-PFIZER INC-2008065366

PATIENT
  Sex: Female
  Weight: 63 kg

DRUGS (4)
  1. CHANTIX [Suspect]
     Indication: SMOKING CESSATION THERAPY
     Dates: start: 20080617, end: 20080819
  2. ALPRAZOLAM [Concomitant]
  3. IMITREX [Concomitant]
     Indication: MIGRAINE
  4. VITAMIN TAB [Concomitant]

REACTIONS (1)
  - PANIC ATTACK [None]
